FAERS Safety Report 16951865 (Version 1)
Quarter: 2019Q4

REPORT INFORMATION
  Report Type: Spontaneous
  Country: US (occurrence: US)
  Receive Date: 20191023
  Receipt Date: 20191023
  Transmission Date: 20200122
  Serious: No
  Sender: FDA-Public Use
  Company Number: US-SUN PHARMACEUTICAL INDUSTRIES LTD-2019R1-219046

PATIENT
  Sex: Female

DRUGS (2)
  1. SILDENAFIL. [Concomitant]
     Active Substance: SILDENAFIL
     Indication: PRODUCT USED FOR UNKNOWN INDICATION
     Dosage: UNK
     Route: 065
  2. AMBRISENTAN [Suspect]
     Active Substance: AMBRISENTAN
     Indication: PULMONARY ARTERIAL HYPERTENSION
     Dosage: 10 MILLIGRAM, QD
     Route: 048
     Dates: start: 20190509

REACTIONS (8)
  - Pain in extremity [Unknown]
  - Malaise [Unknown]
  - Cough [Unknown]
  - Ear pain [Unknown]
  - Hypersensitivity [Unknown]
  - Rhinalgia [Unknown]
  - Ear discomfort [Unknown]
  - Fall [Unknown]

NARRATIVE: CASE EVENT DATE: 2019
